FAERS Safety Report 7259928-X (Version None)
Quarter: 2011Q1

REPORT INFORMATION
  Report Type: 
  Country: None (occurrence: None)
  Receive Date: 20110130
  Receipt Date: 20100916
  Transmission Date: 20110831
  Serious: No
  Sender: FDA-Public Use
  Company Number: US-ABBOTT-10P-163-0671487-00

PATIENT
  Age: 41 Year
  Sex: Female

DRUGS (6)
  1. MULTI-VITAMIN [Concomitant]
     Indication: PRODUCT USED FOR UNKNOWN INDICATION
     Dosage: DAILY
  2. PENTASA [Concomitant]
     Indication: CROHN'S DISEASE
  3. HUMIRA [Suspect]
     Indication: CROHN'S DISEASE
     Dates: start: 20100914
  4. PREDNISONE [Concomitant]
     Indication: PRODUCT USED FOR UNKNOWN INDICATION
  5. PROTONIX [Concomitant]
     Indication: GASTRIC ULCER
  6. TINCTURE OF OPIUM [Concomitant]
     Indication: DEFAECATION URGENCY

REACTIONS (4)
  - SINUS HEADACHE [None]
  - SINUS CONGESTION [None]
  - NASAL CONGESTION [None]
  - INFLUENZA LIKE ILLNESS [None]
